FAERS Safety Report 24071150 (Version 2)
Quarter: 2024Q3

REPORT INFORMATION
  Report Type: Report from Study
  Country: JP (occurrence: JP)
  Receive Date: 20240710
  Receipt Date: 20240710
  Transmission Date: 20241016
  Serious: No
  Sender: ROCHE
  Company Number: JP-CHUGAI-2022033347

PATIENT
  Age: 51 Year
  Sex: Male
  Weight: 58.0 kg

DRUGS (6)
  1. EVRYSDI [Suspect]
     Active Substance: RISDIPLAM
     Indication: Spinal muscular atrophy
     Route: 048
     Dates: start: 20220210, end: 20220821
  2. EVRYSDI [Suspect]
     Active Substance: RISDIPLAM
     Route: 048
     Dates: start: 20220829
  3. ATORVASTATIN [Concomitant]
     Active Substance: ATORVASTATIN
     Dosage: UNK
     Dates: start: 20220210
  4. ALLOPURINOL [Concomitant]
     Active Substance: ALLOPURINOL
     Dosage: UNK
     Dates: start: 20220210
  5. ETIZOLAM [Concomitant]
     Active Substance: ETIZOLAM
     Dosage: UNK
     Dates: start: 20220210
  6. LOXOPROFEN SODIUM [Concomitant]
     Active Substance: LOXOPROFEN SODIUM
     Dosage: UNK
     Dates: start: 20220729

REACTIONS (2)
  - Diarrhoea [Recovering/Resolving]
  - Ureterolithiasis [Recovered/Resolved]

NARRATIVE: CASE EVENT DATE: 20220818
